FAERS Safety Report 13399962 (Version 1)
Quarter: 2017Q2

REPORT INFORMATION
  Report Type: Spontaneous
  Country: US (occurrence: US)
  Receive Date: 20170404
  Receipt Date: 20170404
  Transmission Date: 20170830
  Serious: No
  Sender: FDA-Public Use
  Company Number: US-ASTRAZENECA-2016SF06730

PATIENT
  Age: 35 Year
  Sex: Male

DRUGS (1)
  1. ZETONNA [Suspect]
     Active Substance: CICLESONIDE
     Indication: MALAISE
     Dosage: UNK
     Route: 048
     Dates: start: 20160919, end: 20160920

REACTIONS (3)
  - Cough [Recovered/Resolved]
  - Wrong patient received medication [Unknown]
  - Incorrect route of drug administration [Unknown]

NARRATIVE: CASE EVENT DATE: 20160919
